FAERS Safety Report 14211615 (Version 1)
Quarter: 2017Q4

REPORT INFORMATION
  Report Type: Spontaneous
  Country: US (occurrence: None)
  Receive Date: 20171121
  Receipt Date: 20171121
  Transmission Date: 20180321
  Serious: Yes (Hospitalization)
  Sender: FDA-Public Use
  Company Number: None

PATIENT
  Age: 9 Year
  Sex: Female

DRUGS (13)
  1. AZITHROMYCIN ANHYDROUS. [Concomitant]
     Active Substance: AZITHROMYCIN ANHYDROUS
  2. LINEZOLID. [Concomitant]
     Active Substance: LINEZOLID
  3. DOXYCYCL HYC [Concomitant]
  4. COMPLETE FORM CHEW GRAPE [Concomitant]
  5. METOCLOPRAM [Concomitant]
     Active Substance: METOCLOPRAMIDE
  6. METOCLOPRAMIDE. [Concomitant]
     Active Substance: METOCLOPRAMIDE
  7. OMEPRAZOLE. [Concomitant]
     Active Substance: OMEPRAZOLE
  8. VIOKACE [Concomitant]
     Active Substance: PANCRELIPASE AMYLASE\PANCRELIPASE LIPASE\PANCRELIPASE PROTEASE
  9. TRIAMCINOLON [Concomitant]
  10. PULMOZYME [Suspect]
     Active Substance: DORNASE ALFA
     Indication: CYSTIC FIBROSIS
     Dosage: I VIAL IN NEBULIZER
     Dates: start: 20170104
  11. AQUADEKS [Concomitant]
     Active Substance: MINERALS\VITAMINS
  12. ALBUTEROL. [Concomitant]
     Active Substance: ALBUTEROL
  13. CIPROFLOXACIN. [Concomitant]
     Active Substance: CIPROFLOXACIN

REACTIONS (1)
  - Cystic fibrosis [None]

NARRATIVE: CASE EVENT DATE: 20171110
